FAERS Safety Report 12806367 (Version 1)
Quarter: 2016Q4

REPORT INFORMATION
  Report Type: Spontaneous
  Country: DE (occurrence: DE)
  Receive Date: 20161004
  Receipt Date: 20161004
  Transmission Date: 20170207
  Serious: Yes (Other)
  Sender: FDA-Public Use
  Company Number: DE-DRREDDYS-GER/GER/16/0083711

PATIENT
  Age: 32 Year
  Sex: Female
  Weight: 80 kg

DRUGS (10)
  1. IBUPROFEN. [Concomitant]
     Active Substance: IBUPROFEN
     Indication: PAIN
     Dosage: AS NEEDED, CIRCA ONCE/WEEK
     Route: 048
     Dates: start: 20150315, end: 20150727
  2. CEFUROXIME. [Concomitant]
     Active Substance: CEFUROXIME
     Indication: PROPHYLAXIS URINARY TRACT INFECTION
     Dosage: 1.5 (G/D )/ DURING HOSPITAL STAY PRESCRIBED FOR 6 TO 8 WEEKS
     Route: 042
     Dates: start: 20150722, end: 20150727
  3. KONTRAZEPTIVUM [Concomitant]
     Indication: ORAL CONTRACEPTION
     Dosage: MINIPILLE
     Route: 048
  4. AGYRAX [Concomitant]
     Active Substance: MECLIZINE HYDROCHLORIDE
     Indication: NAUSEA
     Dosage: STARTED AT THE BEGINNING OF MAY 2015
     Route: 048
     Dates: start: 20150501, end: 20150625
  5. FOLIO [Concomitant]
     Active Substance: FOLIC ACID
     Indication: PROPHYLAXIS OF NEURAL TUBE DEFECT
     Route: 048
  6. VALDOXAN [Suspect]
     Active Substance: AGOMELATINE
     Indication: DEPRESSION
     Route: 048
     Dates: start: 20150315, end: 20150727
  7. TAVOR (LORAZEPAM) [Concomitant]
     Active Substance: LORAZEPAM
     Indication: PANIC ATTACK
     Route: 048
     Dates: start: 20150315, end: 20150727
  8. SERTRALINE [Suspect]
     Active Substance: SERTRALINE HYDROCHLORIDE
     Indication: DEPRESSION
     Dosage: 100 MG/D (-75 MG/D) / SINCE 2014 IN GW 13 1/7 (JUNE 2015) INCREASED TO 100 MG/D
     Route: 048
     Dates: start: 20150315, end: 20150727
  9. UNACID [Concomitant]
     Active Substance: AMPICILLIN SODIUM\SULBACTAM SODIUM
     Indication: PYELONEPHRITIS
     Dates: start: 20150721, end: 20150722
  10. PROMETHAZINE [Concomitant]
     Active Substance: PROMETHAZINE\PROMETHAZINE HYDROCHLORIDE
     Indication: PANIC ATTACK
     Route: 048

REACTIONS (5)
  - Abortion late [Recovered/Resolved]
  - Pyrexia [Recovered/Resolved]
  - Pyelonephritis [Recovered/Resolved]
  - Retroplacental haematoma [Recovered/Resolved]
  - Exposure during pregnancy [Recovered/Resolved]
